FAERS Safety Report 8436978 (Version 2)
Quarter: 2012Q4

REPORT INFORMATION
  Report Type: 
  Country: DE (occurrence: DE)
  Receive Date: 20120302
  Receipt Date: 20121105
  Transmission Date: 20130627
  Serious: Yes (Hospitalization)
  Sender: FDA-Public Use
  Company Number: DE-JNJFOC-20120211343

PATIENT
  Age: 41 Year
  Sex: Male

DRUGS (7)
  1. RISPERDAL [Suspect]
     Indication: PRODUCT USED FOR UNKNOWN INDICATION
     Route: 048
  2. RISPERDAL [Suspect]
     Indication: PRODUCT USED FOR UNKNOWN INDICATION
     Route: 048
     Dates: start: 20110925, end: 20111001
  3. RISPERDAL [Suspect]
     Indication: PRODUCT USED FOR UNKNOWN INDICATION
     Route: 048
     Dates: start: 20111012
  4. RISPERDAL [Suspect]
     Indication: PRODUCT USED FOR UNKNOWN INDICATION
     Route: 048
     Dates: start: 20111002, end: 20111011
  5. XIMOVAN [Concomitant]
     Route: 048
     Dates: start: 20111002, end: 20111013
  6. TAVOR [Concomitant]
     Route: 048
     Dates: start: 20111008, end: 20111010
  7. TAVOR [Concomitant]
     Route: 048
     Dates: start: 20111006, end: 20111007

REACTIONS (2)
  - Schizophrenia [Recovered/Resolved]
  - Dyskinesia [Recovered/Resolved]
